FAERS Safety Report 22384020 (Version 1)
Quarter: 2023Q2

REPORT INFORMATION
  Report Type: Report from Study
  Country: US (occurrence: US)
  Receive Date: 20230530
  Receipt Date: 20230530
  Transmission Date: 20230722
  Serious: Yes (Hospitalization)
  Sender: FDA-Public Use
  Company Number: US-ABBVIE-5184649

PATIENT
  Sex: Female

DRUGS (1)
  1. VENCLEXTA [Suspect]
     Active Substance: VENETOCLAX
     Indication: Adult T-cell lymphoma/leukaemia
     Dosage: TAKE 1 TABLET BY MOUTH DAILY WITH FOOD AND WATER; 50 MG
     Route: 048

REACTIONS (1)
  - Myocardial infarction [Unknown]
